FAERS Safety Report 5977897-7 (Version None)
Quarter: 2008Q4

REPORT INFORMATION
  Report Type: 
  Country: None (occurrence: None)
  Receive Date: 20081203
  Receipt Date: 20081126
  Transmission Date: 20090506
  Serious: Yes (Other)
  Sender: FDA-Public Use
  Company Number: US-ALLERGAN-0815133US

PATIENT
  Sex: Female

DRUGS (4)
  1. RESTASIS [Suspect]
     Indication: DRY EYE
     Dosage: UNK, UNK
     Route: 047
     Dates: start: 20081001
  2. REFRESH P.M. [Concomitant]
  3. LOTEMAX [Concomitant]
  4. ABILIFY [Concomitant]

REACTIONS (3)
  - EYE IRRITATION [None]
  - EYELID PTOSIS [None]
  - MUSCLE SPASMS [None]
